FAERS Safety Report 8606783 (Version 3)
Quarter: 2014Q1

REPORT INFORMATION
  Report Type: Spontaneous
  Country: US (occurrence: US)
  Receive Date: 20120611
  Receipt Date: 20140127
  Transmission Date: 20141002
  Serious: Yes (Disabling)
  Sender: FDA-Public Use
  Company Number: US-ASTRAZENECA-2012SE35776

PATIENT
  Age: 41 Year
  Sex: Male
  Weight: 99.3 kg

DRUGS (20)
  1. NEXIUM [Suspect]
     Indication: ULCER
     Route: 048
     Dates: start: 2001, end: 2008
  2. NEXIUM [Suspect]
     Indication: GASTROOESOPHAGEAL REFLUX DISEASE
     Route: 048
     Dates: start: 2001, end: 2008
  3. NEXIUM [Suspect]
     Indication: ULCER
     Route: 048
     Dates: end: 2009
  4. NEXIUM [Suspect]
     Indication: GASTROOESOPHAGEAL REFLUX DISEASE
     Route: 048
     Dates: end: 2009
  5. NEXIUM [Suspect]
     Indication: ULCER
     Route: 048
     Dates: start: 2002, end: 2006
  6. NEXIUM [Suspect]
     Indication: GASTROOESOPHAGEAL REFLUX DISEASE
     Route: 048
     Dates: start: 2002, end: 2006
  7. PRILOSEC [Suspect]
     Indication: GASTROOESOPHAGEAL REFLUX DISEASE
     Route: 048
     Dates: start: 2001, end: 2008
  8. PRILOSEC [Suspect]
     Indication: GASTROOESOPHAGEAL REFLUX DISEASE
     Route: 048
     Dates: start: 20110425
  9. PROTONIX [Concomitant]
     Indication: GASTROOESOPHAGEAL REFLUX DISEASE
     Dates: start: 2012, end: 2013
  10. PREVACID [Concomitant]
     Indication: GASTROOESOPHAGEAL REFLUX DISEASE
  11. PEPCID [Concomitant]
  12. PRAVASTATIN [Concomitant]
     Dates: start: 20090112
  13. CITALOPRAM [Concomitant]
     Dates: start: 20090403
  14. FLUTICASONE [Concomitant]
     Dates: start: 20090416
  15. HYDROCO/APAP [Concomitant]
     Dosage: 7.5-50
     Dates: start: 20090430
  16. ENDOCET [Concomitant]
     Dosage: 10-325
     Dates: start: 20090707
  17. TIZANIDINE [Concomitant]
     Dates: start: 20090828
  18. LIPITOR [Concomitant]
     Dates: start: 20091208
  19. METFORMIN [Concomitant]
     Dates: start: 20100428
  20. CRESTOR [Concomitant]
     Route: 048
     Dates: start: 20100907

REACTIONS (14)
  - Bone pain [Unknown]
  - Cervical spinal stenosis [Unknown]
  - Osteoporosis [Unknown]
  - Intervertebral disc protrusion [Unknown]
  - Multiple fractures [Unknown]
  - Carpal tunnel syndrome [Unknown]
  - Arthropathy [Unknown]
  - Abdominal pain [Unknown]
  - Pelvic pain [Unknown]
  - Arthritis [Unknown]
  - Diabetes mellitus [Unknown]
  - Facet joint syndrome [Unknown]
  - Lumbar spinal stenosis [Unknown]
  - Osteoarthritis [Unknown]
